FAERS Safety Report 9404396 (Version 1)
Quarter: 2013Q3

REPORT INFORMATION
  Report Type: Spontaneous
  Country: US (occurrence: US)
  Receive Date: 20130717
  Receipt Date: 20130717
  Transmission Date: 20140515
  Serious: No
  Sender: FDA-Public Use
  Company Number: US-009507513-1307USA005603

PATIENT
  Sex: 0

DRUGS (3)
  1. SAPHRIS [Suspect]
     Route: 060
  2. EFFEXOR [Concomitant]
  3. TOPAMAX [Concomitant]

REACTIONS (3)
  - Fatigue [Unknown]
  - Drug ineffective [Unknown]
  - Somnolence [Unknown]
